FAERS Safety Report 9138355 (Version 3)
Quarter: 2014Q1

REPORT INFORMATION
  Report Type: Spontaneous
  Country: PL (occurrence: PL)
  Receive Date: 20130305
  Receipt Date: 20140114
  Transmission Date: 20141002
  Serious: Yes (Death, Hospitalization, Other)
  Sender: FDA-Public Use
  Company Number: PL-CELGENEUS-129-21880-12111915

PATIENT
  Age: 58 Year
  Sex: Male
  Weight: 90 kg

DRUGS (16)
  1. REVLIMID [Suspect]
     Indication: PLASMA CELL MYELOMA
     Dosage: 25 MILLIGRAM
     Route: 048
     Dates: start: 20120821, end: 20121118
  2. REVLIMID [Suspect]
     Dosage: 25 MILLIGRAM
     Route: 048
     Dates: start: 20120921, end: 20121118
  3. DEXAMETHASONE [Suspect]
     Indication: PLASMA CELL MYELOMA
     Dosage: 40 MILLIGRAM
     Route: 048
     Dates: start: 20120821, end: 20121113
  4. DEXAMETHASONE [Suspect]
     Dosage: 40 MILLIGRAM
     Route: 048
     Dates: start: 20120921, end: 20121113
  5. DEXAMETHASONE [Suspect]
     Dosage: 8 MILLIGRAM
     Route: 041
     Dates: start: 20120821, end: 20121113
  6. ELOTUZUMAB [Suspect]
     Indication: PLASMA CELL MYELOMA
     Dosage: 900 MILLIGRAM
     Route: 041
     Dates: start: 20120821, end: 20121113
  7. ELOTUZUMAB [Suspect]
     Dosage: 900 MILLIGRAM
     Route: 041
     Dates: start: 20120921, end: 20121113
  8. TAMSULOSIN HYDROCHLORIDE [Concomitant]
     Indication: PRODUCT USED FOR UNKNOWN INDICATION
     Route: 065
     Dates: start: 20120821
  9. POTASSIUM CHLORIDE [Concomitant]
     Indication: PRODUCT USED FOR UNKNOWN INDICATION
     Route: 065
     Dates: start: 20120829
  10. ASCORBIC ACID [Concomitant]
     Indication: PRODUCT USED FOR UNKNOWN INDICATION
     Route: 065
     Dates: start: 20120921
  11. BUPRENORPHINE [Concomitant]
     Indication: PRODUCT USED FOR UNKNOWN INDICATION
     Route: 065
     Dates: start: 20120925, end: 20121108
  12. FILGRASTIM [Concomitant]
     Indication: PRODUCT USED FOR UNKNOWN INDICATION
     Route: 065
     Dates: start: 20121006, end: 20121008
  13. FILGRASTIM [Concomitant]
     Route: 065
     Dates: start: 20121014, end: 20121015
  14. FILGRASTIM [Concomitant]
     Route: 065
     Dates: start: 20121109, end: 20121112
  15. FILGRASTIM [Concomitant]
     Route: 065
     Dates: start: 20121128, end: 20121204
  16. RUTOSIDE [Concomitant]
     Indication: PRODUCT USED FOR UNKNOWN INDICATION
     Route: 065
     Dates: start: 20120921

REACTIONS (3)
  - Plasma cell myeloma [Fatal]
  - Femoral neck fracture [Not Recovered/Not Resolved]
  - Anaemia [Not Recovered/Not Resolved]
